FAERS Safety Report 5246029-5 (Version None)
Quarter: 2007Q1

REPORT INFORMATION
  Report Type: 
  Country: None (occurrence: None)
  Receive Date: 20061201
  Receipt Date: 20060724
  Transmission Date: 20070707
  Serious: No
  Sender: FDA-Public Use
  Company Number: 2006PV018211

PATIENT
  Age: 63 Year
  Sex: Male
  Weight: 169.6453 kg

DRUGS (5)
  1. BYETTA [Suspect]
     Indication: DIABETES MELLITUS NON-INSULIN-DEPENDENT
     Dosage: 10 MCG;BID;SC, 5 MCG; UNK, SC
     Route: 058
     Dates: start: 20060201, end: 20060301
  2. BYETTA [Suspect]
     Indication: DIABETES MELLITUS NON-INSULIN-DEPENDENT
     Dosage: 10 MCG;BID;SC, 5 MCG; UNK, SC
     Route: 058
     Dates: start: 20060301, end: 20060723
  3. NOVOLIN 70/30 [Concomitant]
  4. GLUCOPHAGE [Concomitant]
  5. ACTOS [Concomitant]

REACTIONS (4)
  - BALANCE DISORDER [None]
  - MUSCULOSKELETAL STIFFNESS [None]
  - WEIGHT DECREASED [None]
  - WEIGHT INCREASED [None]
